FAERS Safety Report 7989427-9 (Version None)
Quarter: 2011Q4

REPORT INFORMATION
  Report Type: 
  Country: None (occurrence: None)
  Receive Date: 20111219
  Receipt Date: 20111209
  Transmission Date: 20120403
  Serious: Yes (Hospitalization)
  Sender: FDA-Public Use
  Company Number: GB-GENZYME-CLOF-1001935

PATIENT
  Sex: Male

DRUGS (8)
  1. EVOLTRA [Suspect]
     Dosage: CYCLE 2
     Route: 065
     Dates: start: 20111018, end: 20111022
  2. PLERIXAFOR [Suspect]
     Dosage: CYCLE 2
     Route: 065
     Dates: start: 20111018, end: 20111022
  3. EVOLTRA [Suspect]
     Indication: ACUTE MYELOID LEUKAEMIA
     Dosage: CYCLE 1
     Route: 065
  4. PLERIXAFOR [Suspect]
     Indication: ACUTE MYELOID LEUKAEMIA
     Dosage: CYCLE 1
     Route: 065
  5. DAUNORUBICIN HCL [Suspect]
     Indication: ACUTE MYELOID LEUKAEMIA
     Dosage: CYCLE 1
     Route: 065
  6. NEUPOGEN [Suspect]
     Indication: ACUTE MYELOID LEUKAEMIA
     Dosage: CYCLE 1
     Route: 065
  7. DAUNORUBICIN HCL [Suspect]
     Dosage: CYCLE 2
     Route: 065
     Dates: start: 20111018, end: 20111022
  8. NEUPOGEN [Suspect]
     Dosage: CYCLE 2
     Route: 065

REACTIONS (1)
  - PLATELET COUNT DECREASED [None]
